FAERS Safety Report 22168625 (Version 1)
Quarter: 2023Q2

REPORT INFORMATION
  Report Type: Spontaneous
  Country: GB (occurrence: GB)
  Receive Date: 20230403
  Receipt Date: 20230403
  Transmission Date: 20230721
  Serious: Yes (Other)
  Sender: FDA-Public Use
  Company Number: None

PATIENT
  Age: 88 Year
  Sex: Male
  Weight: 77 kg

DRUGS (16)
  1. ATORVASTATIN [Suspect]
     Active Substance: ATORVASTATIN
     Indication: Product used for unknown indication
     Dosage: 40 MILLIGRAM, QD
     Route: 065
     Dates: start: 20230214
  2. BISOPROLOL [Concomitant]
     Active Substance: BISOPROLOL
     Dosage: 1 DOSAGE FORM, QD
     Route: 065
     Dates: start: 20230214
  3. ENALAPRIL [Concomitant]
     Active Substance: ENALAPRIL
     Dosage: 1 DOSAGE FORM, QD
     Route: 065
     Dates: start: 20221208, end: 20230216
  4. FERROUS FUMARATE [Concomitant]
     Active Substance: FERROUS FUMARATE
     Dosage: 1 DOSAGE FORM, QD
     Route: 065
     Dates: start: 20221208
  5. FOLIC ACID [Concomitant]
     Active Substance: FOLIC ACID
     Dosage: 1 DOSAGE FORM, QW, 48 H AFTER METHOTREXATE
     Route: 065
     Dates: start: 20221208
  6. BECLOMETHASONE\FORMOTEROL [Concomitant]
     Active Substance: BECLOMETHASONE\FORMOTEROL
     Dosage: 2 DOSAGE FORM, BID (ROUTE RESPIRATORY)
     Route: 055
     Dates: start: 20230220
  7. FUROSEMIDE [Concomitant]
     Active Substance: FUROSEMIDE
     Dosage: 1 DOSAGE FORM, QD, MORNING
     Route: 065
     Dates: start: 20221208
  8. NITROGLYCERIN [Concomitant]
     Active Substance: NITROGLYCERIN
     Indication: Chest pain
     Dosage: 1 DOSAGE FORM, AS NECESSARY (ONE UNDER THE TONGUE WHEN REQUIRED)
     Route: 060
     Dates: start: 20220906
  9. TRAMADOL HYDROCHLORIDE [Concomitant]
     Active Substance: TRAMADOL HYDROCHLORIDE
     Dosage: 1 DOSAGE FORM, BID (PROLONGED RELEASE)
     Route: 065
     Dates: start: 20221107
  10. METHOTREXATE [Concomitant]
     Active Substance: METHOTREXATE
     Dosage: 12.5 MILLIGRAM, QW, 12.5MG (FIVE TABLETS) TO BE TAKEN WEEKLY AS A S
     Route: 065
     Dates: start: 20221208
  11. OMEPRAZOLE [Concomitant]
     Active Substance: OMEPRAZOLE
     Dosage: 1 DOSAGE FORM, QD
     Route: 065
     Dates: start: 20221208
  12. RAMIPRIL [Concomitant]
     Active Substance: RAMIPRIL
     Dosage: 1 DOSAGE FORM, QD, PLEASE STOP THE ENALPARIL
     Route: 065
     Dates: start: 20230214
  13. SERTRALINE [Concomitant]
     Active Substance: SERTRALINE HYDROCHLORIDE
     Dosage: 1 DOSAGE FORM, QD
     Route: 065
     Dates: start: 20221208
  14. SPIRONOLACTONE [Concomitant]
     Active Substance: SPIRONOLACTONE
     Dosage: 1 DOSAGE FORM, QD
     Route: 065
     Dates: start: 20221208
  15. TRAMADOL [Concomitant]
     Active Substance: TRAMADOL
     Dosage: 1 DOSAGE FORM, BID
     Route: 065
     Dates: start: 20230228
  16. WARFARIN SODIUM [Concomitant]
     Active Substance: WARFARIN SODIUM
     Dosage: 1 DOSAGE FORM, AS DIRECTED
     Route: 065
     Dates: start: 20220628

REACTIONS (2)
  - Lethargy [Recovered/Resolved]
  - Myalgia [Recovered/Resolved]
